FAERS Safety Report 12248623 (Version 2)
Quarter: 2016Q2

REPORT INFORMATION
  Report Type: Spontaneous
  Country: US (occurrence: US)
  Receive Date: 20160408
  Receipt Date: 20160506
  Transmission Date: 20160815
  Serious: No
  Sender: FDA-Public Use
  Company Number: US-PFIZER INC-2016197165

PATIENT
  Age: 71 Year
  Sex: Male
  Weight: 66 kg

DRUGS (1)
  1. LIPITOR [Suspect]
     Active Substance: ATORVASTATIN CALCIUM
     Dosage: 10 TO 20MG, 1X/DAY

REACTIONS (3)
  - Pain in extremity [Unknown]
  - Myalgia [Unknown]
  - Arthralgia [Unknown]
